FAERS Safety Report 6589375-5 (Version None)
Quarter: 2010Q1

REPORT INFORMATION
  Report Type: 
  Country: None (occurrence: None)
  Receive Date: 20100212
  Receipt Date: 20100127
  Transmission Date: 20100710
  Serious: Yes (Hospitalization)
  Sender: FDA-Public Use
  Company Number: VISP-UK-1001S-0040

PATIENT
  Sex: Male

DRUGS (5)
  1. VISIPAQUE [Suspect]
     Indication: CORONARY ARTERY DISEASE
     Dosage: SINGLE DOSE, I.A.
     Route: 014
     Dates: start: 20091215, end: 20091215
  2. VISIPAQUE [Suspect]
  3. ACETYKSALICYLIC ACID (ASPIRIN) [Concomitant]
  4. LIDOCAINE 2% [Concomitant]
  5. HEPARINISED SALINE [Concomitant]

REACTIONS (3)
  - CEREBELLAR ATAXIA [None]
  - OPHTHALMOPLEGIA [None]
  - VITH NERVE PARALYSIS [None]
